FAERS Safety Report 4299075-2 (Version None)
Quarter: 2004Q1

REPORT INFORMATION
  Report Type: 
  Country: None (occurrence: None)
  Receive Date: 20040219
  Receipt Date: 20040206
  Transmission Date: 20041129
  Serious: Yes (Hospitalization)
  Sender: FDA-Public Use
  Company Number: 200410318JP

PATIENT
  Sex: Male

DRUGS (3)
  1. LANTUS [Suspect]
     Route: 058
     Dates: start: 20031224
  2. PENFILL N [Concomitant]
     Dates: end: 20031219
  3. BASEN [Concomitant]
     Route: 048

REACTIONS (2)
  - BRAIN STEM INFARCTION [None]
  - HYPOGLYCAEMIA [None]
